FAERS Safety Report 22982569 (Version 2)
Quarter: 2024Q1

REPORT INFORMATION
  Report Type: Report from Study
  Country: GR (occurrence: GR)
  Receive Date: 20230926
  Receipt Date: 20240101
  Transmission Date: 20240409
  Serious: Yes (Hospitalization)
  Sender: FDA-Public Use
  Company Number: GR-ABBVIE-5417909

PATIENT
  Age: 74 Year
  Sex: Female

DRUGS (5)
  1. CARBIDOPA\LEVODOPA [Suspect]
     Active Substance: CARBIDOPA\LEVODOPA
     Indication: Parkinson^s disease
     Dosage: MORNING DOSE: 8.0ML; CONTINUOUS RATE: 2.9ML/H; EXTRA DOSE: 1.4ML
     Route: 050
     Dates: start: 20201128
  2. CARBIDOPA\LEVODOPA [Suspect]
     Active Substance: CARBIDOPA\LEVODOPA
     Dosage: MORNING DOSE: 8.0ML; CONTINUOUS RATE: 2.9ML/H; EXTRA DOSE: 1.4ML
     Route: 050
  3. ENLIFT [Concomitant]
     Indication: Product used for unknown indication
  4. DOSPELIN [Concomitant]
     Indication: Product used for unknown indication
  5. SEROQUEL [Concomitant]
     Active Substance: QUETIAPINE FUMARATE
     Indication: Product used for unknown indication

REACTIONS (3)
  - Hip fracture [Recovered/Resolved]
  - Fall [Recovered/Resolved]
  - Joint dislocation [Recovering/Resolving]

NARRATIVE: CASE EVENT DATE: 20230901
